FAERS Safety Report 7107425-4 (Version None)
Quarter: 2010Q4

REPORT INFORMATION
  Report Type: 
  Country: None (occurrence: None)
  Receive Date: 20101110
  Receipt Date: 20101101
  Transmission Date: 20110411
  Serious: Yes (Hospitalization)
  Sender: FDA-Public Use
  Company Number: B0683262A

PATIENT
  Age: 8 Month
  Sex: 0
  Weight: 10.977 kg

DRUGS (2)
  1. CLOBETASOL PROPIONATE [Suspect]
     Indication: DERMATITIS DIAPER
     Dosage: EIGHT TIMES PER DAY / TOPIC
     Route: 061
  2. NYSTAT+GRAMIC+NEOMY+TRIAM (FORMULATION UNKNOWN) (NYSTAT+GRAMIC+NEOMY+T [Suspect]
     Indication: DERMATITIS DIAPER
     Dosage: EIGHT TIMES PER DAY / TOPIC
     Route: 061

REACTIONS (6)
  - CUSHING'S SYNDROME [None]
  - FUNGAL INFECTION [None]
  - INCORRECT DRUG ADMINISTRATION DURATION [None]
  - RASH PAPULAR [None]
  - SECONDARY ADRENOCORTICAL INSUFFICIENCY [None]
  - SKIN CANDIDA [None]
